FAERS Safety Report 10223227 (Version 1)
Quarter: 2014Q2

REPORT INFORMATION
  Report Type: Report from Study
  Country: US (occurrence: US)
  Receive Date: 20140609
  Receipt Date: 20140609
  Transmission Date: 20141212
  Serious: Yes (Death)
  Sender: FDA-Public Use
  Company Number: US-BRISTOL-MYERS SQUIBB COMPANY-20871869

PATIENT
  Age: 57 Year
  Sex: Male
  Weight: 120 kg

DRUGS (1)
  1. BELATACEPT [Suspect]
     Indication: RENAL TRANSPLANT
     Dosage: LAST DOSE:27AUG2013
     Dates: start: 20130405

REACTIONS (1)
  - Lung neoplasm malignant [Fatal]
